FAERS Safety Report 9270223 (Version 2)
Quarter: 2013Q2

REPORT INFORMATION
  Report Type: Spontaneous
  Country: RS (occurrence: RS)
  Receive Date: 20130503
  Receipt Date: 20130613
  Transmission Date: 20140414
  Serious: Yes (Life-Threatening, Other)
  Sender: FDA-Public Use
  Company Number: RS-TEVA-401101ISR

PATIENT
  Age: 60 Year
  Sex: Female

DRUGS (5)
  1. PACLITAXEL TEVA [Suspect]
     Indication: BREAST CANCER
     Dosage: 1X5ML (30MG/5ML)
     Route: 042
  2. AMP.RANISAN [Concomitant]
     Dosage: 1 AMPOULE
     Route: 042
  3. AMP. KLOMETOL [Concomitant]
     Dosage: 1 AMPOULE
     Route: 042
  4. AMP. SYNOPEN [Concomitant]
     Dosage: 1 AMPOULE
     Route: 042
  5. AMP. DEXASON [Concomitant]
     Dosage: 2 AMPOULES

REACTIONS (8)
  - Choking [Unknown]
  - Erythema [Recovered/Resolved]
  - Flushing [Recovered/Resolved]
  - Blood pressure abnormal [Recovered/Resolved]
  - Back pain [Recovered/Resolved]
  - Chest discomfort [Recovered/Resolved]
  - Fatigue [Unknown]
  - Dyspnoea [Recovered/Resolved with Sequelae]
